FAERS Safety Report 13647474 (Version 1)
Quarter: 2017Q2

REPORT INFORMATION
  Report Type: Report from Study
  Country: US (occurrence: US)
  Receive Date: 20170613
  Receipt Date: 20170613
  Transmission Date: 20170830
  Serious: Yes (Hospitalization, Other)
  Sender: FDA-Public Use
  Company Number: US-PRAGMA PHARMACEUTICALS, LLC-2017PRG00055

PATIENT
  Age: 67 Year
  Sex: Female

DRUGS (35)
  1. DOXYCYCLINE. [Suspect]
     Active Substance: DOXYCYCLINE
     Indication: BREAST ABSCESS
     Dosage: UNK
     Dates: start: 2016, end: 2016
  2. LISINOPRIL. [Suspect]
     Active Substance: LISINOPRIL
     Indication: HYPERTENSION
     Dosage: UNK
     Dates: end: 201610
  3. METOPROLOL. [Suspect]
     Active Substance: METOPROLOL
     Indication: HYPERTENSION
     Dosage: UNK
     Dates: end: 201610
  4. UNKNOWN INTRAVENOUS FLUID [Suspect]
     Active Substance: UNSPECIFIED INGREDIENT
     Dosage: UNK
     Route: 042
     Dates: start: 201609
  5. PROLIA [Concomitant]
     Active Substance: DENOSUMAB
  6. TRAZODONE [Concomitant]
     Active Substance: TRAZODONE HYDROCHLORIDE
  7. MILK THISTLE [Concomitant]
     Active Substance: MILK THISTLE
  8. CULTURELLE [Concomitant]
     Active Substance: LACTOBACILLUS RHAMNOSUS
  9. DURAGESIC [Concomitant]
     Active Substance: FENTANYL
  10. CIPROFLOXACIN. [Suspect]
     Active Substance: CIPROFLOXACIN
     Indication: URINARY TRACT INFECTION
     Dosage: UNK
     Dates: start: 201609
  11. HUMIRA [Suspect]
     Active Substance: ADALIMUMAB
     Dosage: 40 MG, (1 IN 2 WK)
     Route: 058
     Dates: start: 201611
  12. UNKNOWN INTRAVENOUS FLUID [Suspect]
     Active Substance: UNSPECIFIED INGREDIENT
     Dosage: UNK
     Route: 042
     Dates: start: 201610
  13. PREDNISONE. [Concomitant]
     Active Substance: PREDNISONE
  14. VITAMIN B COMPLEX [Concomitant]
     Active Substance: CYANOCOBALAMIN\DEXPANTHENOL\NIACINAMIDE\PYRIDOXINE HYDROCHLORIDE\RIBOFLAVIN 5^-PHOSPHATE SODIUM\THIAMINE HYDROCHLORIDE\VITAMIN B COMPLEX
  15. OMEPRAZOLE. [Concomitant]
     Active Substance: OMEPRAZOLE
  16. FOLIC ACID. [Concomitant]
     Active Substance: FOLIC ACID
  17. COLACE [Concomitant]
     Active Substance: DOCUSATE SODIUM
  18. CARVEDILOL. [Suspect]
     Active Substance: CARVEDILOL
     Indication: HYPERTENSION
     Dosage: 6.5 MG, 2X/DAY
     Dates: start: 201610
  19. LASIX [Suspect]
     Active Substance: FUROSEMIDE
     Indication: DIURETIC THERAPY
     Dosage: 40 MG, 1X/DAY
     Route: 048
     Dates: end: 201610
  20. OXYBUTYNIN [Concomitant]
     Active Substance: OXYBUTYNIN
  21. PRISTIQ EXTENDED-RELEASE [Concomitant]
     Active Substance: DESVENLAFAXINE SUCCINATE
  22. LEXAPRO [Concomitant]
     Active Substance: ESCITALOPRAM OXALATE
  23. KEFLEX [Suspect]
     Active Substance: CEPHALEXIN
     Indication: BREAST ABSCESS
     Dosage: UNK
     Dates: start: 2016, end: 2016
  24. LOSARTAN POTASSIUM. [Suspect]
     Active Substance: LOSARTAN POTASSIUM
     Indication: HYPERTENSION
     Dosage: 50 MG, 2X/DAY
     Dates: start: 201610
  25. ABILIFY [Concomitant]
     Active Substance: ARIPIPRAZOLE
  26. CALCIUM [Concomitant]
     Active Substance: CALCIUM
  27. RED YEAST RICE [Concomitant]
     Active Substance: DIETARY SUPPLEMENT
  28. KLOR-CON [Concomitant]
     Active Substance: POTASSIUM CHLORIDE
  29. MULTIVITAMIN [Concomitant]
     Active Substance: VITAMINS
  30. HUMIRA [Suspect]
     Active Substance: ADALIMUMAB
     Indication: RHEUMATOID ARTHRITIS
     Dosage: 40 MG, (1 IN 2 WK)
     Route: 058
     Dates: start: 2014, end: 2014
  31. METHOTREXATE. [Concomitant]
     Active Substance: METHOTREXATE
  32. SULFA (SULFADIAZINE) [Concomitant]
     Active Substance: SULFADIAZINE
  33. HUMIRA [Suspect]
     Active Substance: ADALIMUMAB
     Dosage: 40 MG, (1 IN 2 WK)
     Route: 058
     Dates: start: 201306, end: 201609
  34. LORTAB [Concomitant]
     Active Substance: ACETAMINOPHEN\HYDROCODONE BITARTRATE
  35. ALDACTONE [Concomitant]
     Active Substance: SPIRONOLACTONE
     Indication: HYPERTENSION
     Dosage: 25 MG, UNK
     Dates: start: 201611

REACTIONS (11)
  - Loss of consciousness [Recovered/Resolved]
  - Urinary tract infection [Recovered/Resolved]
  - Pyelonephritis [Recovered/Resolved]
  - Cardiac failure congestive [Recovered/Resolved]
  - Dehydration [Recovered/Resolved]
  - Dizziness [Recovered/Resolved]
  - Hip fracture [Recovered/Resolved]
  - Clostridium difficile infection [Recovered/Resolved]
  - Diarrhoea [Recovered/Resolved]
  - Fluid overload [Recovering/Resolving]
  - Fall [Recovering/Resolving]

NARRATIVE: CASE EVENT DATE: 2016
